FAERS Safety Report 26050434 (Version 1)
Quarter: 2025Q4

REPORT INFORMATION
  Report Type: Spontaneous
  Country: US (occurrence: US)
  Receive Date: 20251116
  Receipt Date: 20251116
  Transmission Date: 20260118
  Serious: Yes (Hospitalization, Other)
  Sender: CIPLA
  Company Number: US-CIPLA (EU) LIMITED-2025US14000

PATIENT

DRUGS (3)
  1. SERTRALINE [Suspect]
     Active Substance: SERTRALINE HYDROCHLORIDE
     Indication: Depression
     Dosage: 25 MILLIGRAM, UNK
     Route: 065
  2. SERTRALINE [Suspect]
     Active Substance: SERTRALINE HYDROCHLORIDE
     Dosage: 50 MILLIGRAM (DOSE INCREASED), UNK
     Route: 065
     Dates: end: 2025
  3. TYLENOL [Suspect]
     Active Substance: ACETAMINOPHEN
     Dosage: 90 DOSAGE FORM
     Route: 048
     Dates: start: 20250801

REACTIONS (2)
  - Suicide attempt [Unknown]
  - Mental disorder [Unknown]
